FAERS Safety Report 7215735-5 (Version None)
Quarter: 2011Q1

REPORT INFORMATION
  Report Type: 
  Country: None (occurrence: None)
  Receive Date: 20110107
  Receipt Date: 20101227
  Transmission Date: 20110831
  Serious: Yes (Other)
  Sender: FDA-Public Use
  Company Number: US-ELI_LILLY_AND_COMPANY-US201009004788

PATIENT
  Sex: Female

DRUGS (16)
  1. ISOSORBIDE MONONITRATE [Concomitant]
     Dosage: 60 MG, DAILY (1/D)
  2. NITROGLYCERIN [Concomitant]
     Dosage: 0.4 MG, DAILY (1/D)
  3. CYMBALTA [Suspect]
     Dosage: 30 MG, 2/D
  4. LOSARTAN POTASSIUM [Concomitant]
  5. RESTASIS [Concomitant]
  6. PREMARIN [Concomitant]
     Dosage: 0.45 MG, DAILY (1/D)
  7. LEVOTHYROXINE [Concomitant]
  8. CYMBALTA [Suspect]
     Indication: FIBROMYALGIA
     Dosage: 30 MG, DAILY (1/D)
     Dates: start: 20100602, end: 20100909
  9. PRAVASTATIN [Concomitant]
     Dosage: 20 MG, DAILY (1/D)
  10. SYNTHROID [Concomitant]
     Dosage: 75 UG, DAILY (1/D)
  11. PANTOPRAZOLE [Concomitant]
  12. ASPIRIN [Concomitant]
     Dosage: D
  13. DILTIAZEM [Concomitant]
     Dosage: 240 MG, DAILY (1/D)
  14. ALDACTONE [Concomitant]
     Dosage: 25 MG, DAILY (1/D)
  15. COZAAR [Concomitant]
     Dosage: 50 MG, DAILY (1/D)
  16. PREVACID [Concomitant]
     Dosage: UNK, AS NEEDED

REACTIONS (22)
  - GAIT DISTURBANCE [None]
  - WEIGHT DECREASED [None]
  - DRUG WITHDRAWAL SYNDROME [None]
  - NECK INJURY [None]
  - TINNITUS [None]
  - BLOOD SODIUM DECREASED [None]
  - LOSS OF CONSCIOUSNESS [None]
  - BACK INJURY [None]
  - HEADACHE [None]
  - CONFUSIONAL STATE [None]
  - CONCUSSION [None]
  - DYSPHONIA [None]
  - BALANCE DISORDER [None]
  - DIARRHOEA [None]
  - FALL [None]
  - IRRITABILITY [None]
  - ABNORMAL DREAMS [None]
  - VERTIGO [None]
  - FEELING ABNORMAL [None]
  - DIZZINESS [None]
  - JOINT DISLOCATION [None]
  - RIB FRACTURE [None]
